FAERS Safety Report 5515563-2 (Version None)
Quarter: 2007Q4

REPORT INFORMATION
  Report Type: 
  Country: None (occurrence: None)
  Receive Date: 20071113
  Receipt Date: 20070612
  Transmission Date: 20080405
  Serious: No
  Sender: FDA-Public Use
  Company Number: A0654402A

PATIENT
  Age: 82 Year
  Sex: Female

DRUGS (11)
  1. COREG [Suspect]
     Indication: HYPERTENSION
     Route: 048
     Dates: start: 20061201
  2. BENICAR [Concomitant]
  3. NORVASC [Concomitant]
  4. CLONIDINE [Concomitant]
  5. VICODIN [Concomitant]
  6. MORPHINE [Concomitant]
  7. VITAMINS [Concomitant]
  8. CALCIUM [Concomitant]
  9. PREMARIN [Concomitant]
  10. COUMADIN [Concomitant]
  11. ATIVAN [Concomitant]

REACTIONS (3)
  - BLOOD PRESSURE FLUCTUATION [None]
  - DRUG INEFFECTIVE [None]
  - OVERDOSE [None]
